FAERS Safety Report 12491044 (Version 3)
Quarter: 2016Q2

REPORT INFORMATION
  Report Type: Spontaneous
  Country: JP (occurrence: JP)
  Receive Date: 20160623
  Receipt Date: 20160630
  Transmission Date: 20160815
  Serious: Yes (Other)
  Sender: FDA-Public Use
  Company Number: JP-ROCHE-1780792

PATIENT
  Age: 84 Year
  Sex: Female

DRUGS (1)
  1. CEFTRIAXONE SODIUM. [Suspect]
     Active Substance: CEFTRIAXONE SODIUM
     Indication: PYELONEPHRITIS
     Route: 042

REACTIONS (4)
  - Pancreatitis acute [Recovered/Resolved]
  - Cholelithiasis [Recovering/Resolving]
  - Cholecystitis acute [Recovering/Resolving]
  - Cholangitis acute [Recovering/Resolving]
